FAERS Safety Report 4801985-1 (Version None)
Quarter: 2005Q4

REPORT INFORMATION
  Report Type: 
  Country: None (occurrence: None)
  Receive Date: 20051018
  Receipt Date: 20051011
  Transmission Date: 20060501
  Serious: Yes (Death, Hospitalization)
  Sender: FDA-Public Use
  Company Number: PHBS2005ES14974

PATIENT
  Age: 43 Year
  Sex: Male

DRUGS (3)
  1. CICLOSPORIN [Suspect]
     Indication: LIVER TRANSPLANT
  2. MYCOPHENOLATE MOFETIL [Concomitant]
  3. STEROIDS NOS [Concomitant]

REACTIONS (10)
  - GASTROINTESTINAL HAEMORRHAGE [None]
  - HAEMOBILIA [None]
  - HEPATIC ARTERY THROMBOSIS [None]
  - HEPATIC NECROSIS [None]
  - PYREXIA [None]
  - SHOCK HAEMORRHAGIC [None]
  - TRANSPLANT REJECTION [None]
  - VASCULAR PSEUDOANEURYSM [None]
  - VASCULAR PSEUDOANEURYSM RUPTURED [None]
  - VASCULAR STENOSIS [None]
